FAERS Safety Report 9358498 (Version 2)
Quarter: 2013Q3

REPORT INFORMATION
  Report Type: Spontaneous
  Country: JP (occurrence: JP)
  Receive Date: 20130620
  Receipt Date: 20130726
  Transmission Date: 20140515
  Serious: Yes (Hospitalization)
  Sender: FDA-Public Use
  Company Number: JP-ASTRAZENECA-2013SE42308

PATIENT
  Age: 8853 Day
  Sex: Female
  Weight: 78 kg

DRUGS (8)
  1. NEXIUM [Suspect]
     Indication: DUODENAL ULCER
     Route: 048
     Dates: start: 20130515, end: 20130604
  2. VOLTAREN [Concomitant]
     Indication: PYREXIA
     Route: 054
     Dates: start: 20130604, end: 20130605
  3. SG [Concomitant]
     Indication: HEADACHE
     Route: 048
     Dates: start: 20130515, end: 20130604
  4. TERNELIN [Concomitant]
     Indication: HEADACHE
     Route: 048
     Dates: start: 20130515, end: 20130604
  5. TANNALBIN [Concomitant]
     Indication: DIARRHOEA
     Route: 048
     Dates: start: 20130525, end: 20130531
  6. PRIMPERAN [Concomitant]
     Indication: NAUSEA
     Route: 048
     Dates: start: 20130522, end: 20130604
  7. LAC-B [Concomitant]
     Indication: DIARRHOEA
     Route: 048
     Dates: start: 20130522, end: 20130526
  8. CALONAL [Concomitant]
     Indication: PYREXIA
     Route: 048
     Dates: start: 20130522, end: 20130529

REACTIONS (2)
  - Hepatitis acute [Recovering/Resolving]
  - Gastroenteritis [Unknown]
